FAERS Safety Report 7743119-X (Version None)
Quarter: 2011Q3

REPORT INFORMATION
  Report Type: 
  Country: None (occurrence: None)
  Receive Date: 20110912
  Receipt Date: 20110907
  Transmission Date: 20111222
  Serious: Yes (Other)
  Sender: FDA-Public Use
  Company Number: CH-ROCHE-801056

PATIENT
  Age: 44 Year
  Sex: Male

DRUGS (3)
  1. BEVACIZUMAB [Suspect]
     Indication: NON-SMALL CELL LUNG CANCER
     Route: 042
     Dates: start: 20110829
  2. PEMETREXED [Suspect]
     Route: 042
     Dates: start: 20110825
  3. CISPLATIN [Suspect]
     Route: 042
     Dates: start: 20110829

REACTIONS (1)
  - STRESS [None]
